FAERS Safety Report 5632610-8 (Version None)
Quarter: 2008Q1

REPORT INFORMATION
  Report Type: 
  Country: None (occurrence: None)
  Receive Date: 20080220
  Receipt Date: 20080211
  Transmission Date: 20080703
  Serious: Yes (Other)
  Sender: FDA-Public Use
  Company Number: US-PFIZER INC-2008002548

PATIENT
  Sex: Male
  Weight: 95.3 kg

DRUGS (1)
  1. CHANTIX [Suspect]
     Indication: SMOKING CESSATION THERAPY
     Route: 048
     Dates: start: 20071115, end: 20071221

REACTIONS (5)
  - CONFUSIONAL STATE [None]
  - DEPRESSION [None]
  - HOMELESS [None]
  - PARANOIA [None]
  - PSYCHOTIC DISORDER [None]
